FAERS Safety Report 5648455-9 (Version None)
Quarter: 2008Q1

REPORT INFORMATION
  Report Type: 
  Country: None (occurrence: None)
  Receive Date: 20080303
  Receipt Date: 20080303
  Transmission Date: 20080703
  Serious: Yes (Disabling)
  Sender: FDA-Public Use
  Company Number: None

PATIENT
  Sex: Female
  Weight: 58.9676 kg

DRUGS (1)
  1. METFORMIN ER 500 MG TEVA [Suspect]
     Indication: DIABETES MELLITUS
     Dosage: 500 MG 2 X DAY
     Dates: start: 20080215, end: 20080226

REACTIONS (3)
  - DIABETES MELLITUS INADEQUATE CONTROL [None]
  - HEADACHE [None]
  - PHARMACEUTICAL PRODUCT COMPLAINT [None]
